FAERS Safety Report 4937410-X (Version None)
Quarter: 2006Q1

REPORT INFORMATION
  Report Type: 
  Country: None (occurrence: None)
  Receive Date: 20060306
  Receipt Date: 20060221
  Transmission Date: 20060701
  Serious: Yes (Disabling, Other)
  Sender: FDA-Public Use
  Company Number: 2006025737

PATIENT
  Age: 84 Year
  Sex: Male
  Weight: 90.7194 kg

DRUGS (5)
  1. LIPITOR [Suspect]
     Indication: BLOOD CHOLESTEROL INCREASED
     Dosage: ORAL
     Route: 048
     Dates: start: 20050501, end: 20051001
  2. FUROSEMIDE [Concomitant]
  3. QUINAPRIL [Concomitant]
  4. GLIPIZIDE [Concomitant]
  5. WARFARIN SODIUM [Concomitant]

REACTIONS (9)
  - ACTIVITIES OF DAILY LIVING IMPAIRED [None]
  - ASTHENIA [None]
  - BALANCE DISORDER [None]
  - DIFFICULTY IN WALKING [None]
  - FALL [None]
  - MOVEMENT DISORDER [None]
  - MUSCLE CONTRACTURE [None]
  - MUSCULOSKELETAL DISORDER [None]
  - PAIN IN EXTREMITY [None]
